FAERS Safety Report 10160440 (Version 1)
Quarter: 2014Q2

REPORT INFORMATION
  Report Type: Spontaneous
  Country: US (occurrence: US)
  Receive Date: 20140508
  Receipt Date: 20140508
  Transmission Date: 20141212
  Serious: No
  Sender: FDA-Public Use
  Company Number: US-BAYER-2014-066456

PATIENT
  Age: 14 Year
  Sex: Female

DRUGS (3)
  1. MIRENA [Suspect]
     Indication: CONTRACEPTION
     Dosage: 20 MCG/24HR, CONT
     Route: 015
     Dates: start: 201202
  2. KEFLEX [Interacting]
  3. DIFLUCAN [Interacting]

REACTIONS (3)
  - Drug interaction [None]
  - Drug interaction [None]
  - Fungal infection [None]
